FAERS Safety Report 4443172-5 (Version None)
Quarter: 2004Q3

REPORT INFORMATION
  Report Type: 
  Country: None (occurrence: None)
  Receive Date: 20040901
  Receipt Date: 20040819
  Transmission Date: 20050211
  Serious: Yes (Hospitalization, Other)
  Sender: FDA-Public Use
  Company Number: 2004052685

PATIENT
  Sex: Male

DRUGS (3)
  1. NEURONTIN [Suspect]
     Indication: CONVULSION
  2. CLONAZEPAM [Suspect]
     Indication: CONVULSION
  3. DIAZEPAM [Suspect]
     Indication: CONVULSION

REACTIONS (3)
  - AGITATION [None]
  - CONDITION AGGRAVATED [None]
  - CONVULSION [None]
